FAERS Safety Report 25680826 (Version 1)
Quarter: 2025Q3

REPORT INFORMATION
  Report Type: Spontaneous
  Country: US (occurrence: US)
  Receive Date: 20250814
  Receipt Date: 20250814
  Transmission Date: 20251021
  Serious: Yes (Hospitalization)
  Sender: MYLAN
  Company Number: US-MYLANLABS-2025M1067311

PATIENT
  Age: 78 Year
  Sex: Male

DRUGS (20)
  1. APIXABAN [Suspect]
     Active Substance: APIXABAN
     Indication: Anticoagulant therapy
  2. APIXABAN [Suspect]
     Active Substance: APIXABAN
     Indication: Thrombosis prophylaxis
     Route: 065
  3. APIXABAN [Suspect]
     Active Substance: APIXABAN
     Route: 065
  4. APIXABAN [Suspect]
     Active Substance: APIXABAN
  5. REMDESIVIR [Suspect]
     Active Substance: REMDESIVIR
     Indication: COVID-19
  6. REMDESIVIR [Suspect]
     Active Substance: REMDESIVIR
     Route: 065
  7. REMDESIVIR [Suspect]
     Active Substance: REMDESIVIR
     Route: 065
  8. REMDESIVIR [Suspect]
     Active Substance: REMDESIVIR
  9. CASIRIVIMAB [Suspect]
     Active Substance: CASIRIVIMAB
     Indication: COVID-19
  10. CASIRIVIMAB [Suspect]
     Active Substance: CASIRIVIMAB
     Route: 065
  11. CASIRIVIMAB [Suspect]
     Active Substance: CASIRIVIMAB
     Route: 065
  12. CASIRIVIMAB [Suspect]
     Active Substance: CASIRIVIMAB
  13. IMDEVIMAB [Suspect]
     Active Substance: IMDEVIMAB
     Indication: COVID-19
  14. IMDEVIMAB [Suspect]
     Active Substance: IMDEVIMAB
     Route: 065
  15. IMDEVIMAB [Suspect]
     Active Substance: IMDEVIMAB
     Route: 065
  16. IMDEVIMAB [Suspect]
     Active Substance: IMDEVIMAB
  17. ENOXAPARIN [Suspect]
     Active Substance: ENOXAPARIN
     Indication: Anticoagulant therapy
  18. ENOXAPARIN [Suspect]
     Active Substance: ENOXAPARIN
     Indication: Thrombosis prophylaxis
     Route: 065
  19. ENOXAPARIN [Suspect]
     Active Substance: ENOXAPARIN
     Route: 065
  20. ENOXAPARIN [Suspect]
     Active Substance: ENOXAPARIN

REACTIONS (1)
  - Drug ineffective [Unknown]
